FAERS Safety Report 9101435 (Version 1)
Quarter: 2013Q1

REPORT INFORMATION
  Report Type: Spontaneous
  Country: US (occurrence: US)
  Receive Date: 20130218
  Receipt Date: 20130218
  Transmission Date: 20140127
  Serious: Yes (Death)
  Sender: FDA-Public Use
  Company Number: US-COVIDIEN/TYCO HEALTHCARE/MALLINCKRODT-T201300650

PATIENT
  Sex: Female

DRUGS (3)
  1. MORPHINE [Suspect]
     Dosage: UNK
     Route: 048
  2. ROXICODONE [Suspect]
     Route: 048
  3. HYDROCODONE [Suspect]
     Route: 048

REACTIONS (2)
  - Completed suicide [Fatal]
  - Cardio-respiratory arrest [Fatal]
